FAERS Safety Report 17064984 (Version 1)
Quarter: 2019Q4

REPORT INFORMATION
  Report Type: Spontaneous
  Country: US (occurrence: US)
  Receive Date: 20191122
  Receipt Date: 20191122
  Transmission Date: 20200122
  Serious: No
  Sender: FDA-Public Use
  Company Number: US-SA-2019SA321321

PATIENT
  Age: 71 Year
  Sex: Female

DRUGS (1)
  1. ENOXAPARIN SODIUM - WINTHROP [Suspect]
     Active Substance: ENOXAPARIN SODIUM
     Dosage: 100 MG, QD
     Route: 065
     Dates: start: 20191101

REACTIONS (2)
  - Drug ineffective [Unknown]
  - Device issue [Unknown]
